FAERS Safety Report 8093305-7 (Version None)
Quarter: 2012Q1

REPORT INFORMATION
  Report Type: 
  Country: None (occurrence: None)
  Receive Date: 20120128
  Receipt Date: 20111026
  Transmission Date: 20120608
  Serious: No
  Sender: FDA-Public Use
  Company Number: US-ABBOTT-11P-163-0840400-00

PATIENT
  Age: 42 Year
  Sex: Male

DRUGS (1)
  1. HUMIRA [Suspect]
     Indication: PSORIASIS
     Dates: start: 20110614

REACTIONS (8)
  - INJECTION SITE PAIN [None]
  - INCORRECT STORAGE OF DRUG [None]
  - HEAD INJURY [None]
  - PSORIASIS [None]
  - POOR QUALITY DRUG ADMINISTERED [None]
  - LACERATION [None]
  - PRURITUS GENERALISED [None]
  - HEADACHE [None]
